FAERS Safety Report 4864062-X (Version None)
Quarter: 2005Q4

REPORT INFORMATION
  Report Type: 
  Country: None (occurrence: None)
  Receive Date: 20051222
  Receipt Date: 20051212
  Transmission Date: 20060501
  Serious: Yes (Hospitalization)
  Sender: FDA-Public Use
  Company Number: US-KINGPHARMUSA00001-K200501588

PATIENT
  Age: 79 Year

DRUGS (7)
  1. ALTACE [Suspect]
  2. FUROSEMIDE [Suspect]
     Dosage: 40 MG, QD
  3. RANITIDINE [Suspect]
     Dosage: 300 MG, QD
  4. DIGOXIN [Concomitant]
     Dosage: 125 UG, UNK
  5. ASPIRIN [Concomitant]
     Dosage: 75 MG, UNK
  6. FENOFIBRATE [Concomitant]
     Dosage: 267 MG, UNK
  7. HYPROMELLOSE [Concomitant]
     Dosage: UNK, UNK
     Route: 047

REACTIONS (5)
  - ABDOMINAL PAIN [None]
  - BLOOD AMYLASE INCREASED [None]
  - DIARRHOEA [None]
  - PANCREATITIS HAEMORRHAGIC [None]
  - VOMITING [None]
